FAERS Safety Report 21397762 (Version 1)
Quarter: 2022Q3

REPORT INFORMATION
  Report Type: Spontaneous
  Country: US (occurrence: US)
  Receive Date: 20220930
  Receipt Date: 20220930
  Transmission Date: 20221026
  Serious: No
  Sender: FDA-Public Use
  Company Number: US-LANNETT COMPANY, INC.-US-2021LAN000365

PATIENT
  Sex: Female

DRUGS (1)
  1. FLUPHENAZINE HYDROCHLORIDE [Suspect]
     Active Substance: FLUPHENAZINE HYDROCHLORIDE
     Indication: Schizophrenia
     Dosage: 10 MG, TID
     Route: 048

REACTIONS (1)
  - Blood urea abnormal [Unknown]
